FAERS Safety Report 23982027 (Version 3)
Quarter: 2024Q4

REPORT INFORMATION
  Report Type: Spontaneous
  Country: US (occurrence: US)
  Receive Date: 20240617
  Receipt Date: 20241011
  Transmission Date: 20250115
  Serious: Yes (Death, Hospitalization)
  Sender: GLAXOSMITHKLINE
  Company Number: US-GSK-US2024074359

PATIENT

DRUGS (7)
  1. NUCALA [Suspect]
     Active Substance: MEPOLIZUMAB
     Indication: Asthma
     Dosage: UNK
     Dates: start: 20240525, end: 20240525
  2. TRELEGY ELLIPTA [Concomitant]
     Active Substance: FLUTICASONE FUROATE\UMECLIDINIUM BROMIDE\VILANTEROL TRIFENATATE
     Indication: Asthma
     Dosage: 2 PUFF(S), 200MCG/62.5 MCG/25MCG
     Dates: start: 20231130
  3. LISINOPRIL [Concomitant]
     Active Substance: LISINOPRIL
     Indication: Blood pressure measurement
     Dosage: UNK,20 MG, TAKING FOR OVER 10YEARS
  4. BUPROPION [Concomitant]
     Active Substance: BUPROPION
     Indication: Anxiety
     Dosage: UNK, 300MG
  5. LOSARTAN [Concomitant]
     Active Substance: LOSARTAN
     Indication: Anxiety
     Dosage: UNK, 300MG
  6. IPRATROPIUM BROMIDE AND ALBUTEROL SULFATE [Concomitant]
     Active Substance: ALBUTEROL SULFATE\IPRATROPIUM BROMIDE
     Indication: Asthma
     Dosage: UNK, 0.5 MG ITRATROPIUM ALBUTEROL 3 MG
  7. AIRSUPRA [Concomitant]
     Active Substance: ALBUTEROL SULFATE\BUDESONIDE
     Indication: Asthma
     Dosage: UNK, 90 / 80 MCG, 2 PUFFS EVERY 6 HOURS AS NEEDED

REACTIONS (1)
  - Asthma [Fatal]

NARRATIVE: CASE EVENT DATE: 20240614
